FAERS Safety Report 22384500 (Version 1)
Quarter: 2023Q2

REPORT INFORMATION
  Report Type: Spontaneous
  Country: US (occurrence: US)
  Receive Date: 20230530
  Receipt Date: 20230530
  Transmission Date: 20230722
  Serious: No
  Sender: FDA-Public Use
  Company Number: US-PERRIGO-23US003606

PATIENT
  Age: 46 Year
  Sex: Male
  Weight: 95.238 kg

DRUGS (2)
  1. MINOXIDIL [Suspect]
     Active Substance: MINOXIDIL
     Indication: Alopecia
     Dosage: APPROX. A CAPFUL, BID
     Route: 061
     Dates: start: 20230214, end: 20230314
  2. NEUTROGENA T [SALICYLIC ACID] [Concomitant]
     Indication: Product used for unknown indication
     Dosage: UNKNOWN, Q 2 WEEKS
     Route: 065

REACTIONS (2)
  - Application site erythema [Recovered/Resolved]
  - Incorrect dose administered [Unknown]

NARRATIVE: CASE EVENT DATE: 20230214
